FAERS Safety Report 7229683-8 (Version None)
Quarter: 2011Q1

REPORT INFORMATION
  Report Type: 
  Country: None (occurrence: None)
  Receive Date: 20110117
  Receipt Date: 20110106
  Transmission Date: 20110831
  Serious: Yes (Hospitalization)
  Sender: FDA-Public Use
  Company Number: PHHO2010NL19402

PATIENT
  Sex: Male
  Weight: 64 kg

DRUGS (4)
  1. ESOMEPRAZOLE [Concomitant]
  2. SANDIMMUNE [Suspect]
     Indication: GRAFT VERSUS HOST DISEASE
     Dosage: 225 MG, BID
     Route: 048
     Dates: start: 20100918, end: 20101101
  3. MYCOPHENOLIC ACID [Suspect]
     Indication: GRAFT VERSUS HOST DISEASE
     Dosage: UNK
     Dates: start: 20100923
  4. COTRIM [Concomitant]

REACTIONS (4)
  - TRANSPLANT FAILURE [None]
  - HYPOTENSION [None]
  - RENAL FAILURE [None]
  - ELECTROLYTE IMBALANCE [None]
